FAERS Safety Report 10480044 (Version 1)
Quarter: 2014Q3

REPORT INFORMATION
  Report Type: Spontaneous
  Country: CA (occurrence: CA)
  Receive Date: 20140929
  Receipt Date: 20140929
  Transmission Date: 20150326
  Serious: Yes (Other)
  Sender: FDA-Public Use
  Company Number: CA-MERCK-1409CAN010093

PATIENT
  Age: 72 Year
  Sex: Female
  Weight: 58.5 kg

DRUGS (1)
  1. EZETROL [Suspect]
     Active Substance: EZETIMIBE
     Dosage: 1 DF, FREQUENCY: TOTAL
     Route: 065

REACTIONS (2)
  - Adenoid cystic carcinoma [Unknown]
  - Oral mucosal blistering [Unknown]
